FAERS Safety Report 26118997 (Version 1)
Quarter: 2025Q4

REPORT INFORMATION
  Report Type: Spontaneous
  Country: US (occurrence: US)
  Receive Date: 20251204
  Receipt Date: 20251204
  Transmission Date: 20260118
  Serious: No
  Sender: BIOGEN
  Company Number: US-BIOGEN-2025BI01317828

PATIENT
  Sex: Male

DRUGS (1)
  1. SKYCLARYS [Suspect]
     Active Substance: OMAVELOXOLONE
     Indication: Friedreich^s ataxia
     Dates: start: 20250606

REACTIONS (6)
  - Sinusitis [Unknown]
  - Muscle spasms [Unknown]
  - Myalgia [Unknown]
  - Weight increased [Unknown]
  - Dizziness [Unknown]
  - Dehydration [Unknown]
